FAERS Safety Report 23750587 (Version 1)
Quarter: 2024Q2

REPORT INFORMATION
  Report Type: Spontaneous
  Country: FR (occurrence: None)
  Receive Date: 20240417
  Receipt Date: 20240417
  Transmission Date: 20240715
  Serious: Yes (Other)
  Sender: FDA-Public Use
  Company Number: FR-ROCHE-3535107

PATIENT
  Age: 79 Year
  Sex: Male

DRUGS (4)
  1. VABYSMO [Suspect]
     Active Substance: FARICIMAB\FARICIMAB-SVOA
     Indication: Age-related macular degeneration
     Route: 065
     Dates: start: 20231109
  2. VABYSMO [Suspect]
     Active Substance: FARICIMAB\FARICIMAB-SVOA
     Route: 065
     Dates: start: 20240110
  3. VABYSMO [Suspect]
     Active Substance: FARICIMAB\FARICIMAB-SVOA
     Route: 065
     Dates: start: 20240311
  4. LUCENTIS [Concomitant]
     Active Substance: RANIBIZUMAB
     Indication: Age-related macular degeneration
     Route: 050
     Dates: start: 2017, end: 202311

REACTIONS (3)
  - Endophthalmitis [Recovering/Resolving]
  - Eye inflammation [Unknown]
  - Vitritis [Unknown]

NARRATIVE: CASE EVENT DATE: 20240312
